FAERS Safety Report 8761280 (Version 1)
Quarter: 2012Q4

REPORT INFORMATION
  Report Type: 
  Country: IN (occurrence: IN)
  Receive Date: 20120830
  Receipt Date: 20120830
  Transmission Date: 20130627
  Serious: Yes (Other)
  Sender: FDA-Public Use
  Company Number: IN-COVIDIEN/TYCO HEALTHCARE/MALLINCKRODT-T201203262

PATIENT
  Age: 31 Year
  Sex: Female
  Weight: 54 kg

DRUGS (2)
  1. FENTANYL CITRATE [Suspect]
     Indication: ANAESTHESIA
     Dosage: 25 mcg, single
  2. BUPIVACAINE [Suspect]
     Indication: ANAESTHESIA
     Dosage: 7.5 mg, single

REACTIONS (2)
  - Aphonia [Recovered/Resolved]
  - Paraesthesia [Recovered/Resolved]
